FAERS Safety Report 24713708 (Version 1)
Quarter: 2024Q4

REPORT INFORMATION
  Report Type: Report from Study
  Country: US (occurrence: US)
  Receive Date: 20241209
  Receipt Date: 20241209
  Transmission Date: 20250115
  Serious: Yes (Hospitalization, Other)
  Sender: ALEXION PHARMACEUTICALS
  Company Number: US-AstraZeneca-CH-00760397A

PATIENT

DRUGS (6)
  1. ULTOMIRIS [Suspect]
     Active Substance: RAVULIZUMAB-CWVZ
     Indication: Myasthenia gravis
     Dosage: UNK
     Route: 065
  2. ULTOMIRIS [Suspect]
     Active Substance: RAVULIZUMAB-CWVZ
     Dosage: UNK
     Route: 065
  3. ULTOMIRIS [Suspect]
     Active Substance: RAVULIZUMAB-CWVZ
     Dosage: UNK
     Route: 065
  4. ULTOMIRIS [Suspect]
     Active Substance: RAVULIZUMAB-CWVZ
     Dosage: UNK
     Route: 065
  5. HONEY [Suspect]
     Active Substance: HONEY
     Dosage: UNK
     Route: 065
  6. HONEY [Suspect]
     Active Substance: HONEY
     Dosage: UNK
     Route: 065

REACTIONS (14)
  - Cardiac failure congestive [Unknown]
  - Renal impairment [Unknown]
  - Neuropathy peripheral [Unknown]
  - Rectal haemorrhage [Unknown]
  - Blood sodium decreased [Unknown]
  - Swelling [Unknown]
  - Ankle fracture [Unknown]
  - Fall [Unknown]
  - Nausea [Unknown]
  - Vomiting [Unknown]
  - Abdominal pain [Unknown]
  - Dyspnoea [Unknown]
  - Walking aid user [Unknown]
  - Therapeutic response shortened [Unknown]
